FAERS Safety Report 8806308 (Version 3)
Quarter: 2012Q4

REPORT INFORMATION
  Report Type: 
  Country: US (occurrence: US)
  Receive Date: 20120925
  Receipt Date: 20121016
  Transmission Date: 20130627
  Serious: Yes (Death, Other)
  Sender: FDA-Public Use
  Company Number: US-CELGENEUS-163-21880-12092502

PATIENT
  Age: 68 Year
  Sex: Male
  Weight: 86.17 kg

DRUGS (7)
  1. REVLIMID [Suspect]
     Indication: MULTIPLE MYELOMA WITHOUT MENTION OF REMISSION
     Dosage: 25 Milligram
     Route: 048
     Dates: start: 20120810, end: 20120909
  2. VELCADE [Suspect]
     Indication: MULTIPLE MYELOMA
     Route: 058
     Dates: start: 20120810
  3. GLUCOSAMINE [Concomitant]
     Indication: DRUG USE FOR UNKNOWN INDICATION
     Route: 065
  4. TYLENOL PM EXTRA STRENGTH [Concomitant]
     Indication: DRUG USE FOR UNKNOWN INDICATION
     Route: 065
  5. BENAZEPRIL HCL [Concomitant]
     Indication: DRUG USE FOR UNKNOWN INDICATION
     Route: 065
  6. DEXAMETHASONE [Concomitant]
     Indication: DRUG USE FOR UNKNOWN INDICATION
     Route: 065
  7. ALEVE [Concomitant]
     Indication: DRUG USE FOR UNKNOWN INDICATION
     Route: 065

REACTIONS (5)
  - Pneumonia pseudomonas aeruginosa [Fatal]
  - Haemoptysis [Not Recovered/Not Resolved]
  - Feeling abnormal [Not Recovered/Not Resolved]
  - Dyspnoea [Not Recovered/Not Resolved]
  - Oedema peripheral [Not Recovered/Not Resolved]
